FAERS Safety Report 20902639 (Version 1)
Quarter: 2022Q2

REPORT INFORMATION
  Report Type: Spontaneous
  Country: HR (occurrence: HR)
  Receive Date: 20220601
  Receipt Date: 20220601
  Transmission Date: 20220721
  Serious: Yes (Hospitalization, Other)
  Sender: FDA-Public Use
  Company Number: HR-NOVARTISPH-NVSC2022HR124023

PATIENT
  Age: 43 Year
  Sex: Female

DRUGS (3)
  1. KISQALI [Suspect]
     Active Substance: RIBOCICLIB
     Indication: Breast cancer
     Dosage: UNK
     Route: 065
     Dates: start: 202108
  2. KISQALI [Suspect]
     Active Substance: RIBOCICLIB
     Dosage: 3 DOSAGE FORM, QD (600 MG)
     Route: 065
  3. DENOSUMAB [Concomitant]
     Active Substance: DENOSUMAB
     Indication: Product used for unknown indication
     Dosage: UNK
     Route: 065

REACTIONS (16)
  - Cardiomyopathy [Recovering/Resolving]
  - Ejection fraction decreased [Unknown]
  - Diastolic dysfunction [Unknown]
  - Hypervolaemia [Unknown]
  - Cardiomegaly [Unknown]
  - General physical health deterioration [Unknown]
  - Metastases to spine [Unknown]
  - Hypokinesia [Unknown]
  - Pleural effusion [Unknown]
  - Dyspnoea [Unknown]
  - Lung infiltration [Unknown]
  - Sinus bradycardia [Unknown]
  - Hypercalcaemia [Unknown]
  - Normocytic anaemia [Unknown]
  - Metabolic alkalosis [Unknown]
  - Hepatic lesion [Unknown]
